FAERS Safety Report 4650074-8 (Version None)
Quarter: 2005Q2

REPORT INFORMATION
  Report Type: 
  Country: None (occurrence: None)
  Receive Date: 20050428
  Receipt Date: 20050421
  Transmission Date: 20051028
  Serious: No
  Sender: FDA-Public Use
  Company Number: 2005-127653-NL

PATIENT
  Age: 86 Year
  Sex: Male

DRUGS (2)
  1. MIRTAZAPINE [Suspect]
     Indication: MENTAL DISORDER
     Dosage: 30 MG ORAL
     Route: 048
     Dates: start: 20040801, end: 20050401
  2. INHIBACE MITE [Concomitant]

REACTIONS (6)
  - AMNESIA [None]
  - BALANCE DISORDER [None]
  - BLOOD PRESSURE DIASTOLIC DECREASED [None]
  - BLOOD PRESSURE SYSTOLIC DECREASED [None]
  - CARDIOVASCULAR DISORDER [None]
  - TINNITUS [None]
